FAERS Safety Report 5285471-3 (Version None)
Quarter: 2007Q1

REPORT INFORMATION
  Report Type: 
  Country: None (occurrence: None)
  Receive Date: 20070328
  Receipt Date: 20070320
  Transmission Date: 20070707
  Serious: Yes (Other)
  Sender: FDA-Public Use
  Company Number: 232159K07USA

PATIENT
  Age: 62 Year
  Sex: Female

DRUGS (2)
  1. REBIF [Suspect]
     Indication: MULTIPLE SCLEROSIS
  2. AVONEX [Suspect]
     Dosage: 30 MCG, 1 IN 1 WEEKS, INTRAMUSCULAR
     Route: 030
     Dates: start: 19980101, end: 20000101

REACTIONS (1)
  - BREAST CANCER FEMALE [None]
